FAERS Safety Report 6204141-8 (Version None)
Quarter: 2009Q2

REPORT INFORMATION
  Report Type: 
  Country: None (occurrence: None)
  Receive Date: 20090527
  Receipt Date: 20090521
  Transmission Date: 20091009
  Serious: Yes (Other)
  Sender: FDA-Public Use
  Company Number: US-BAYER-200911600BCC

PATIENT
  Sex: Female

DRUGS (3)
  1. ALEVE [Suspect]
     Indication: UNEVALUABLE EVENT
     Dosage: 2 OF UNKNOWN FORM
     Route: 048
     Dates: start: 20090514, end: 20090514
  2. ALEVE [Suspect]
     Dosage: 4 OF UNKNOWN FORM
     Route: 048
     Dates: start: 20090515, end: 20090515
  3. ALEVE [Suspect]
     Dosage: 2 OF UNKNOWN FORM
     Route: 048
     Dates: start: 20090516, end: 20090516

REACTIONS (1)
  - HAEMATOCHEZIA [None]
